FAERS Safety Report 5267571-7 (Version None)
Quarter: 2007Q1

REPORT INFORMATION
  Report Type: 
  Country: None (occurrence: None)
  Receive Date: 20070316
  Receipt Date: 20070305
  Transmission Date: 20070707
  Serious: Yes (Hospitalization)
  Sender: FDA-Public Use
  Company Number: US-ELI_LILLY_AND_COMPANY-US200603004617

PATIENT
  Sex: Male
  Weight: 111.11 kg

DRUGS (5)
  1. ABILIFY [Concomitant]
     Dates: start: 20050801
  2. PAXIL [Concomitant]
     Dates: start: 20050101, end: 20050801
  3. ZYPREXA [Suspect]
     Dosage: 5 MG, UNK
     Dates: start: 19980201, end: 20050801
  4. ZYPREXA [Suspect]
     Dosage: 10 MG, UNK
  5. ZYPREXA [Suspect]
     Dosage: 20 MG, UNK

REACTIONS (5)
  - CHOLELITHIASIS [None]
  - DIABETES MELLITUS [None]
  - DRUG WITHDRAWAL SYNDROME [None]
  - HYPERTENSION [None]
  - WEIGHT INCREASED [None]
